FAERS Safety Report 12323790 (Version 1)
Quarter: 2016Q2

REPORT INFORMATION
  Report Type: Spontaneous
  Country: TR (occurrence: TR)
  Receive Date: 20160502
  Receipt Date: 20160502
  Transmission Date: 20160815
  Serious: Yes (Death, Hospitalization)
  Sender: FDA-Public Use
  Company Number: TR-IPCA LABORATORIES LIMITED-IPC201604-000396

PATIENT
  Age: 46 Year
  Sex: Male

DRUGS (5)
  1. FENTANYL. [Suspect]
     Active Substance: FENTANYL
     Indication: ANALGESIC THERAPY
  2. PARACETAMOL [Suspect]
     Active Substance: ACETAMINOPHEN
     Indication: ANALGESIC THERAPY
     Route: 051
  3. TRAMADOL. [Suspect]
     Active Substance: TRAMADOL
     Indication: ANALGESIC THERAPY
     Route: 030
  4. PROPOFOL. [Suspect]
     Active Substance: PROPOFOL
     Indication: ANAESTHESIA
  5. SEVOFLURANCE BAXTER [Suspect]
     Active Substance: SEVOFLURANE
     Indication: ANAESTHESIA

REACTIONS (10)
  - Hypercapnia [Unknown]
  - Intracranial pressure increased [Unknown]
  - Diabetes insipidus [None]
  - Hypopnoea [Unknown]
  - Somnolence [Unknown]
  - Hypotension [Unknown]
  - Confusional state [None]
  - Areflexia [None]
  - Brain death [Fatal]
  - Brain oedema [None]
